FAERS Safety Report 10062637 (Version 1)
Quarter: 2014Q1

REPORT INFORMATION
  Report Type: Spontaneous
  Country: US (occurrence: None)
  Receive Date: 20140313
  Receipt Date: 20140313
  Transmission Date: 20141002
  Serious: No
  Sender: FDA-Public Use
  Company Number: 1000051276

PATIENT
  Age: 66 Year
  Sex: Male
  Weight: 116.6 kg

DRUGS (1)
  1. DALIRESP (ROFLUMILAST) (500 MICROGRAM, TABLETS) [Suspect]
     Indication: CHRONIC OBSTRUCTIVE PULMONARY DISEASE
     Dosage: 500 MCG (500 MCG, 1 IN 1 D)
     Route: 048
     Dates: start: 20110920, end: 20120403

REACTIONS (2)
  - Headache [None]
  - Drug ineffective [None]
